FAERS Safety Report 6394959-3 (Version None)
Quarter: 2009Q4

REPORT INFORMATION
  Report Type: 
  Country: None (occurrence: None)
  Receive Date: 20091009
  Receipt Date: 20091005
  Transmission Date: 20100525
  Serious: Yes (Death)
  Sender: FDA-Public Use
  Company Number: AU-BRISTOL-MYERS SQUIBB COMPANY-14807499

PATIENT
  Age: 58 Year
  Sex: Male

DRUGS (2)
  1. ATAZANAVIR [Suspect]
     Indication: HIV INFECTION
     Dates: start: 20070601, end: 20071219
  2. LAMIVUDINE [Concomitant]
     Indication: HIV INFECTION

REACTIONS (2)
  - ACUTE HEPATIC FAILURE [None]
  - HEPATIC CIRRHOSIS [None]
